FAERS Safety Report 7756161-X (Version None)
Quarter: 2011Q3

REPORT INFORMATION
  Report Type: 
  Country: None (occurrence: None)
  Receive Date: 20110916
  Receipt Date: 20110616
  Transmission Date: 20111222
  Serious: No
  Sender: FDA-Public Use
  Company Number: US-ABBOTT-10P-163-0677100-00

PATIENT
  Sex: Female
  Weight: 63.106 kg

DRUGS (8)
  1. TRILIPIX [Suspect]
     Indication: BLOOD CHOLESTEROL
  2. COQ10 [Concomitant]
     Indication: VITAMIN SUPPLEMENTATION
  3. CINNAMON PILLS [Concomitant]
     Indication: NUTRITIONAL SUPPORT
  4. TRILIPIX [Suspect]
     Indication: BLOOD TRIGLYCERIDES INCREASED
     Dates: start: 20090101
  5. UNKNOWN SUPPLEMENTS [Concomitant]
     Indication: PRODUCT USED FOR UNKNOWN INDICATION
  6. PREMARIN [Concomitant]
     Indication: HORMONE REPLACEMENT THERAPY
  7. FLAXSEED OIL [Concomitant]
     Indication: VITAMIN SUPPLEMENTATION
  8. VITAMIN TAB [Concomitant]
     Indication: VITAMIN SUPPLEMENTATION

REACTIONS (1)
  - NAUSEA [None]
